FAERS Safety Report 12874377 (Version 1)
Quarter: 2016Q4

REPORT INFORMATION
  Report Type: Spontaneous
  Country: US (occurrence: US)
  Receive Date: 20161021
  Receipt Date: 20161021
  Transmission Date: 20170207
  Serious: Yes (Other)
  Sender: FDA-Public Use
  Company Number: US-THE MENTHOLATUM COMPANY-1058639

PATIENT
  Age: 22 Year
  Sex: Male
  Weight: 70.46 kg

DRUGS (1)
  1. OXY RAPID SPOT TREATMENT MAXIMUM ACTION [Suspect]
     Active Substance: BENZOYL PEROXIDE
     Indication: ACNE
     Route: 061
     Dates: start: 20160922, end: 20160928

REACTIONS (3)
  - Scar [Not Recovered/Not Resolved]
  - Application site burn [None]
  - Skin discolouration [None]

NARRATIVE: CASE EVENT DATE: 20160922
